FAERS Safety Report 4314974-0 (Version None)
Quarter: 2004Q1

REPORT INFORMATION
  Report Type: 
  Country: None (occurrence: None)
  Receive Date: 20040309
  Receipt Date: 20040225
  Transmission Date: 20041129
  Serious: Yes (Hospitalization)
  Sender: FDA-Public Use
  Company Number: FR_040203648

PATIENT
  Age: 41 Year
  Sex: Female

DRUGS (4)
  1. PROZAC [Suspect]
     Dates: end: 20001104
  2. LEXOMIL (BROMAZEPAM) [Concomitant]
  3. TRAMADOL HCL [Concomitant]
  4. PIROXICAM [Concomitant]

REACTIONS (3)
  - COMA [None]
  - HAEMOLYTIC ANAEMIA [None]
  - HYPONATRAEMIA [None]
